FAERS Safety Report 6221795-0 (Version None)
Quarter: 2009Q2

REPORT INFORMATION
  Report Type: 
  Country: None (occurrence: None)
  Receive Date: 20090610
  Receipt Date: 20090601
  Transmission Date: 20091009
  Serious: Yes (Other)
  Sender: FDA-Public Use
  Company Number: US-PFIZER INC-2009221670

PATIENT
  Sex: Male
  Weight: 86.168 kg

DRUGS (22)
  1. LIPITOR [Suspect]
     Indication: BLOOD CHOLESTEROL INCREASED
     Dosage: 10 MG, 1X/DAY
     Dates: start: 19950101
  2. ADVAIR HFA [Concomitant]
     Dosage: UNK
  3. ALLOPURINOL [Concomitant]
     Dosage: 300 MG, UNK
  4. AMITRIPTYLINE [Concomitant]
     Dosage: 75 MG, UNK
  5. CARTIA XT [Concomitant]
     Dosage: 180 MG, UNK
  6. NAPROXEN [Concomitant]
     Dosage: 500 MG, UNK
  7. PREVACID [Concomitant]
     Dosage: 30 MG, UNK
  8. PROVIGIL [Concomitant]
     Dosage: 200 MG, 2X/DAY
  9. SINGULAIR [Concomitant]
     Dosage: 10 MG, UNK
  10. SPIRIVA [Concomitant]
     Dosage: UNK
  11. SUCRALFATE [Concomitant]
     Dosage: 1 G, 4X/DAY
  12. TORSEMIDE [Concomitant]
     Dosage: 20 MG, UNK
  13. OXYCONTIN [Concomitant]
     Indication: HEADACHE
     Dosage: 5 MG, UNK
  14. STROVITE [Concomitant]
     Dosage: UNK
  15. PREVIDENT [Concomitant]
     Dosage: UNK
  16. IRON [Concomitant]
     Dosage: 65 MG, 2X/DAY
  17. TRIAMCINOLONE [Concomitant]
     Indication: APHTHOUS STOMATITIS
     Dosage: UNK
  18. DIPROLENE AF [Concomitant]
     Dosage: UNK
  19. MUPIROCIN [Concomitant]
     Indication: EPISTAXIS
     Dosage: UNK
  20. ALFUZOSIN [Concomitant]
     Dosage: 10 MG, UNK
  21. PNEUMOCOCCAL VACCINE [Concomitant]
     Dosage: UNK
     Dates: start: 20081218, end: 20081218
  22. AVAPRO [Concomitant]
     Dosage: 300 MG, UNK

REACTIONS (2)
  - IMMUNOGLOBULINS DECREASED [None]
  - PROSTATOMEGALY [None]
